FAERS Safety Report 15661471 (Version 1)
Quarter: 2018Q4

REPORT INFORMATION
  Report Type: Spontaneous
  Country: IT (occurrence: IT)
  Receive Date: 20181127
  Receipt Date: 20181127
  Transmission Date: 20190205
  Serious: Yes (Hospitalization)
  Sender: FDA-Public Use
  Company Number: IT-ASTRAZENECA-2018SF52294

PATIENT
  Age: 67 Year
  Sex: Male
  Weight: 86 kg

DRUGS (11)
  1. VICTOZA [Concomitant]
     Active Substance: LIRAGLUTIDE
     Indication: DIABETES MELLITUS
     Dosage: 6.0MG UNKNOWN
     Route: 030
  2. TEGRETOL [Concomitant]
     Active Substance: CARBAMAZEPINE
     Indication: EPILEPSY
     Route: 048
     Dates: start: 20181101
  3. CONGESCOR [Concomitant]
     Active Substance: BISOPROLOL
     Indication: CARDIAC FAILURE
     Route: 048
     Dates: start: 20181101
  4. TORVAST [Concomitant]
     Active Substance: ATORVASTATIN
     Indication: BLOOD CHOLESTEROL
     Route: 048
     Dates: start: 20181101
  5. FULCROSUPRA [Concomitant]
     Active Substance: FENOFIBRATE
     Indication: HYPOLIPIDAEMIA
     Route: 048
     Dates: start: 20181101
  6. LASIX [Concomitant]
     Active Substance: FUROSEMIDE
     Indication: RENAL FAILURE
     Dates: start: 20181101
  7. KANRENOL [Concomitant]
     Active Substance: CANRENOATE POTASSIUM
     Indication: CARDIAC FAILURE
     Route: 048
     Dates: start: 20181101
  8. BIFRIL [Concomitant]
     Active Substance: ZOFENOPRIL
     Indication: INFARCTION
     Route: 048
     Dates: start: 20181101
  9. BRILIQUE [Suspect]
     Active Substance: TICAGRELOR
     Indication: INFARCTION
     Route: 048
     Dates: start: 20181101, end: 20181102
  10. CARDIOASPIRIN [Concomitant]
     Active Substance: ASPIRIN
     Indication: INFARCTION
     Route: 048
     Dates: start: 20181101
  11. LANSOPRAZOLE. [Concomitant]
     Active Substance: LANSOPRAZOLE
     Indication: GASTRITIS
     Route: 048
     Dates: start: 20181101

REACTIONS (1)
  - Cardiac arrest [Recovered/Resolved]

NARRATIVE: CASE EVENT DATE: 20181102
